APPROVED DRUG PRODUCT: METHYLDOPA
Active Ingredient: METHYLDOPA
Strength: 500MG
Dosage Form/Route: TABLET;ORAL
Application: A070537 | Product #001
Applicant: STRIDES PHARMA INTERNATIONAL AG
Approved: Jan 2, 1987 | RLD: No | RS: No | Type: DISCN